FAERS Safety Report 16672568 (Version 1)
Quarter: 2019Q3

REPORT INFORMATION
  Report Type: Spontaneous
  Country: NL (occurrence: NL)
  Receive Date: 20190806
  Receipt Date: 20190806
  Transmission Date: 20191004
  Serious: Yes (Death, Hospitalization)
  Sender: FDA-Public Use
  Company Number: NL-MYLANLABS-2019M1073240

PATIENT
  Sex: Male
  Weight: 85 kg

DRUGS (1)
  1. AMIODARONE [Suspect]
     Active Substance: AMIODARONE
     Indication: ATRIAL FIBRILLATION
     Dosage: 1X PER DAG 1 TABLET
     Dates: start: 2017, end: 201810

REACTIONS (2)
  - Lung disorder [Fatal]
  - Hypoxia [Fatal]
